FAERS Safety Report 10216539 (Version 4)
Quarter: 2014Q2

REPORT INFORMATION
  Report Type: Spontaneous
  Country: IT (occurrence: IT)
  Receive Date: 20140604
  Receipt Date: 20140619
  Transmission Date: 20141212
  Serious: Yes (Hospitalization)
  Sender: FDA-Public Use
  Company Number: IT-TEVA-484161ISR

PATIENT
  Age: 24 Year
  Sex: Female

DRUGS (2)
  1. AMOXICILLIN TRIHYDRATE [Suspect]
     Indication: DRUG ABUSE
     Dosage: 2 GRAM DAILY;
     Route: 048
     Dates: start: 20140420, end: 20140427
  2. KETOPROFEN LYSINE [Suspect]
     Indication: DRUG ABUSE
     Dosage: 8 DOSAGE FORMS DAILY;
     Route: 048
     Dates: start: 20140420, end: 20140427

REACTIONS (2)
  - Toxic epidermal necrolysis [Recovering/Resolving]
  - Drug abuse [Unknown]
